FAERS Safety Report 11660888 (Version 1)
Quarter: 2015Q4

REPORT INFORMATION
  Report Type: Spontaneous
  Country: JP (occurrence: JP)
  Receive Date: 20151026
  Receipt Date: 20151026
  Transmission Date: 20160304
  Serious: Yes (Disabling)
  Sender: FDA-Public Use
  Company Number: JP-SA-2015SA142196

PATIENT
  Age: 76 Year
  Sex: Female
  Weight: 49.7 kg

DRUGS (12)
  1. HEPARIN [Concomitant]
     Active Substance: HEPARIN SODIUM
     Indication: ATRIAL FIBRILLATION
     Dates: start: 20150820, end: 20150829
  2. WARFARIN [Concomitant]
     Active Substance: WARFARIN
     Indication: ATRIAL FIBRILLATION
     Dosage: WARFARIN K FINE GRANULES
     Route: 048
     Dates: start: 20150824
  3. AMLODIPINE [Concomitant]
     Active Substance: AMLODIPINE BESYLATE
     Indication: HYPERTENSION
     Dosage: STRENGTH: 5MG
     Route: 048
     Dates: start: 20150708, end: 20150909
  4. CEFMETAZOLE [Concomitant]
     Active Substance: CEFMETAZOLE
     Indication: URINARY TRACT INFECTION
     Dates: start: 20150807, end: 20150821
  5. SLONNON [Concomitant]
     Active Substance: ARGATROBAN
     Dates: start: 20150813, end: 20150816
  6. BISOPROLOL FUMARATE. [Suspect]
     Active Substance: BISOPROLOL FUMARATE
     Indication: ATRIAL FIBRILLATION
     Dosage: STRENGTH: 0.625MG
     Route: 048
     Dates: start: 20150821, end: 20150911
  7. GASMOTIN [Concomitant]
     Active Substance: MOSAPRIDE CITRATE
     Indication: CHRONIC GASTRITIS
     Route: 048
     Dates: start: 20150811, end: 20150905
  8. CLOPIDOGREL [Suspect]
     Active Substance: CLOPIDOGREL BISULFATE
     Indication: PROPHYLAXIS
     Route: 048
     Dates: start: 20150813, end: 20150831
  9. DEXTRAN [Concomitant]
     Active Substance: DEXTRAN
     Dates: start: 20150813, end: 20150814
  10. FAMOTIDINE D [Suspect]
     Active Substance: FAMOTIDINE
     Indication: GASTRITIS
     Route: 048
     Dates: start: 20150805, end: 20150907
  11. TENELIA [Concomitant]
     Active Substance: CITALOPRAM HYDROBROMIDE
     Indication: DIABETES MELLITUS
     Dosage: STRENGTH: 20 MG
     Route: 048
     Dates: start: 20150807
  12. AMIKACIN [Concomitant]
     Active Substance: AMIKACIN
     Indication: URINARY TRACT INFECTION
     Route: 041
     Dates: start: 20150821, end: 20150824

REACTIONS (1)
  - Eosinophilia [Recovered/Resolved]

NARRATIVE: CASE EVENT DATE: 20150905
